FAERS Safety Report 10079604 (Version 1)
Quarter: 2014Q2

REPORT INFORMATION
  Report Type: Report from Study
  Country: BR (occurrence: BR)
  Receive Date: 20140415
  Receipt Date: 20140415
  Transmission Date: 20141212
  Serious: Yes (Death)
  Sender: FDA-Public Use
  Company Number: PHHY2014BR045828

PATIENT
  Sex: Male
  Weight: 80 kg

DRUGS (2)
  1. EXELON [Suspect]
     Indication: DEMENTIA ALZHEIMER^S TYPE
     Dosage: 2 DF, DAILY (MORNING AND AFTERNOON)
     Route: 048
     Dates: start: 2004, end: 2005
  2. ALOIS [Suspect]
     Indication: DEMENTIA ALZHEIMER^S TYPE
     Dosage: 2 DF, DAILY
     Route: 048
     Dates: start: 2005

REACTIONS (4)
  - Infection [Fatal]
  - Head discomfort [Unknown]
  - Drug intolerance [Unknown]
  - Vomiting [Unknown]
